FAERS Safety Report 5800368-5 (Version None)
Quarter: 2008Q3

REPORT INFORMATION
  Report Type: 
  Country: None (occurrence: None)
  Receive Date: 20080703
  Receipt Date: 20080623
  Transmission Date: 20090109
  Serious: Yes (Hospitalization, Other)
  Sender: FDA-Public Use
  Company Number: US-MERCK-0708USA02909

PATIENT
  Age: 64 Year
  Sex: Female
  Weight: 70 kg

DRUGS (11)
  1. FOSAMAX [Suspect]
     Indication: OSTEOPOROSIS
     Route: 048
     Dates: start: 19980101, end: 20000101
  2. FOSAMAX [Suspect]
     Route: 048
     Dates: start: 20000101
  3. FOSAMAX PLUS D [Suspect]
     Indication: OSTEOPOROSIS
     Route: 048
     Dates: end: 20060819
  4. PREMARIN [Concomitant]
     Indication: HOT FLUSH
     Route: 065
     Dates: start: 19880101
  5. CALCIUM (UNSPECIFIED) [Concomitant]
     Indication: BLOOD CALCIUM DECREASED
     Route: 065
  6. VITAMIN D (UNSPECIFIED) [Concomitant]
     Route: 065
  7. ZOLOFT [Concomitant]
     Route: 065
  8. RELAFEN [Concomitant]
     Route: 065
  9. ALLEGRA [Concomitant]
     Route: 065
  10. ZANTAC [Concomitant]
     Route: 065
  11. ACIPHEX [Concomitant]
     Route: 065

REACTIONS (24)
  - ANAEMIA [None]
  - ANXIETY [None]
  - ARTHRITIS [None]
  - ASTHMA [None]
  - DEPRESSION [None]
  - DRUG INEFFECTIVE [None]
  - FALL [None]
  - FEMUR FRACTURE [None]
  - FOOT FRACTURE [None]
  - FRACTURE DELAYED UNION [None]
  - FRACTURE NONUNION [None]
  - GASTROOESOPHAGEAL REFLUX DISEASE [None]
  - HIP FRACTURE [None]
  - HYPERTENSION [None]
  - HYPOTENSION [None]
  - HYPOTHYROIDISM [None]
  - INCONTINENCE [None]
  - INTERVERTEBRAL DISC PROTRUSION [None]
  - JOINT EFFUSION [None]
  - OEDEMA PERIPHERAL [None]
  - OSTEONECROSIS [None]
  - RADICULOPATHY [None]
  - RHINITIS ALLERGIC [None]
  - SYNOVIAL CYST [None]
